FAERS Safety Report 15281345 (Version 1)
Quarter: 2018Q3

REPORT INFORMATION
  Report Type: Spontaneous
  Country: JP (occurrence: JP)
  Receive Date: 20180815
  Receipt Date: 20180815
  Transmission Date: 20181010
  Serious: Yes (Other)
  Sender: FDA-Public Use
  Company Number: JP-MYLANLABS-2018M1061747

PATIENT
  Age: 63 Year
  Sex: Female

DRUGS (8)
  1. PRANLUKAST [Concomitant]
     Active Substance: PRANLUKAST
     Indication: ANTIALLERGIC THERAPY
     Route: 065
  2. BETAMETHASONE. [Suspect]
     Active Substance: BETAMETHASONE
     Route: 065
  3. CEFOPERAZONE + SULBACTAM [Concomitant]
     Active Substance: CEFOPERAZONE SODIUM\SULBACTAM
     Indication: JAUNDICE CHOLESTATIC
     Route: 065
  4. BETAMETHASONE. [Suspect]
     Active Substance: BETAMETHASONE
     Indication: GASTROENTERITIS EOSINOPHILIC
     Route: 065
  5. METHYLPREDNISOLONE. [Suspect]
     Active Substance: METHYLPREDNISOLONE
     Indication: GASTROENTERITIS EOSINOPHILIC
     Route: 042
  6. PREDNISOLONE. [Suspect]
     Active Substance: PREDNISOLONE
     Indication: GASTROENTERITIS EOSINOPHILIC
     Route: 048
  7. CEFOPERAZONE + SULBACTAM [Concomitant]
     Active Substance: CEFOPERAZONE SODIUM\SULBACTAM
     Indication: LIVER ABSCESS
  8. OLOPATADINE. [Concomitant]
     Active Substance: OLOPATADINE
     Indication: ANTIALLERGIC THERAPY
     Route: 065

REACTIONS (1)
  - Drug eruption [Recovering/Resolving]
